FAERS Safety Report 9278188 (Version 1)
Quarter: 2013Q2

REPORT INFORMATION
  Report Type: Spontaneous
  Country: US (occurrence: None)
  Receive Date: 20130506
  Receipt Date: 20130506
  Transmission Date: 20140414
  Serious: Yes (Other)
  Sender: FDA-Public Use
  Company Number: None

PATIENT
  Age: 31 Year
  Sex: Female
  Weight: 77.11 kg

DRUGS (2)
  1. ZOLOFT [Suspect]
     Indication: BIPOLAR DISORDER
     Dosage: ..  AM
  2. ZOLOFT [Suspect]
     Indication: DEPRESSION
     Dosage: ..  AM

REACTIONS (5)
  - Product substitution issue [None]
  - Dyspnoea [None]
  - Sensation of foreign body [None]
  - Fear [None]
  - Panic attack [None]
